FAERS Safety Report 7878896-0 (Version None)
Quarter: 2011Q4

REPORT INFORMATION
  Report Type: 
  Country: None (occurrence: None)
  Receive Date: 20111025
  Receipt Date: 20101124
  Transmission Date: 20120403
  Serious: Yes (Other)
  Sender: FDA-Public Use
  Company Number: 2010BH026968

PATIENT
  Age: 12 Month
  Sex: Male
  Weight: 9.8 kg

DRUGS (3)
  1. ADVATE [Suspect]
     Indication: FACTOR VIII DEFICIENCY
     Dosage: 500 IU;1X A WEEK;IV ; 497 IU;ONCE;IV
     Route: 042
     Dates: start: 20100701, end: 20101011
  2. ADVATE [Suspect]
     Indication: FACTOR VIII DEFICIENCY
     Dosage: 500 IU;1X A WEEK;IV ; 497 IU;ONCE;IV
     Route: 042
     Dates: start: 20101011, end: 20101011
  3. ACYCLOVIR [Suspect]

REACTIONS (1)
  - FACTOR VIII INHIBITION [None]
